FAERS Safety Report 14109879 (Version 1)
Quarter: 2017Q4

REPORT INFORMATION
  Report Type: Spontaneous
  Country: US (occurrence: US)
  Receive Date: 20171020
  Receipt Date: 20171020
  Transmission Date: 20180321
  Serious: No
  Sender: FDA-Public Use
  Company Number: US-TEVA-806305ACC

PATIENT
  Sex: Female

DRUGS (2)
  1. MICONAZOLE. [Suspect]
     Active Substance: MICONAZOLE
     Indication: VAGINAL DISCHARGE
     Dosage: 200 MG / 2 PERCENT
     Route: 067
     Dates: start: 20170906, end: 20170909
  2. MICONAZOLE. [Suspect]
     Active Substance: MICONAZOLE
     Indication: VULVOVAGINAL PRURITUS
     Route: 067

REACTIONS (3)
  - Vulvovaginal pruritus [Unknown]
  - Vaginal discharge [Unknown]
  - Intentional product misuse [Unknown]

NARRATIVE: CASE EVENT DATE: 20170906
